FAERS Safety Report 12871378 (Version 1)
Quarter: 2016Q4

REPORT INFORMATION
  Report Type: Spontaneous
  Country: US (occurrence: US)
  Receive Date: 20161020
  Receipt Date: 20161020
  Transmission Date: 20170207
  Serious: No
  Sender: FDA-Public Use
  Company Number: None

PATIENT
  Sex: Male

DRUGS (1)
  1. STELARA [Suspect]
     Active Substance: USTEKINUMAB
     Indication: CROHN^S DISEASE
     Route: 058
     Dates: start: 20160830

REACTIONS (9)
  - Arthralgia [None]
  - Dyspnoea [None]
  - Vomiting [None]
  - Back pain [None]
  - Pain in extremity [None]
  - Nausea [None]
  - Decreased appetite [None]
  - Muscle twitching [None]
  - Dyskinesia [None]
